FAERS Safety Report 9700029 (Version 1)
Quarter: 2013Q4

REPORT INFORMATION
  Report Type: Spontaneous
  Country: PR (occurrence: PR)
  Receive Date: 20131121
  Receipt Date: 20131121
  Transmission Date: 20140711
  Serious: No
  Sender: FDA-Public Use
  Company Number: PR-BIOGENIDEC-2013BI112679

PATIENT
  Age: 51 Year
  Sex: Female

DRUGS (1)
  1. AVONEX [Suspect]
     Indication: MULTIPLE SCLEROSIS
     Route: 030
     Dates: start: 20130111

REACTIONS (1)
  - Herpes zoster [Unknown]
